FAERS Safety Report 6243853-7 (Version None)
Quarter: 2009Q2

REPORT INFORMATION
  Report Type: 
  Country: None (occurrence: None)
  Receive Date: 20090623
  Receipt Date: 20090608
  Transmission Date: 20091009
  Serious: Yes (Hospitalization)
  Sender: FDA-Public Use
  Company Number: 2009001631

PATIENT
  Age: 56 Year
  Sex: Female

DRUGS (4)
  1. ERLOTINIB (ERLOTINIB) (TABLET) (ERLOTINIB) [Suspect]
     Indication: BREAST CANCER METASTATIC
     Dosage: (150 MG,QD),ORAL ; (150 MG,QD),ORAL
     Route: 048
     Dates: start: 20090407, end: 20090503
  2. ERLOTINIB (ERLOTINIB) (TABLET) (ERLOTINIB) [Suspect]
     Indication: BREAST CANCER METASTATIC
     Dosage: (150 MG,QD),ORAL ; (150 MG,QD),ORAL
     Route: 048
     Dates: start: 20090507, end: 20090517
  3. LASIX [Concomitant]
  4. TAGAMET [Concomitant]

REACTIONS (8)
  - ATELECTASIS [None]
  - BLOOD ALBUMIN DECREASED [None]
  - BLOOD GLUCOSE INCREASED [None]
  - BLOOD POTASSIUM INCREASED [None]
  - CONSTIPATION [None]
  - DEHYDRATION [None]
  - PLEURAL EFFUSION [None]
  - VOMITING [None]
